FAERS Safety Report 9792323 (Version 1)
Quarter: 2014Q1

REPORT INFORMATION
  Report Type: Spontaneous
  Country: US (occurrence: US)
  Receive Date: 20140102
  Receipt Date: 20140102
  Transmission Date: 20141002
  Serious: No
  Sender: FDA-Public Use
  Company Number: US-BIOGENIDEC-2013BI122686

PATIENT
  Age: 61 Year
  Sex: Female

DRUGS (20)
  1. TECFIDERA [Suspect]
     Indication: MULTIPLE SCLEROSIS
     Dates: start: 20131201
  2. TECFIDERA [Suspect]
     Indication: MULTIPLE SCLEROSIS
     Route: 048
     Dates: start: 20131208
  3. INDOMETHACIN [Concomitant]
  4. SALSALATE [Concomitant]
  5. DETROL LA [Concomitant]
  6. AMBIEN CR [Concomitant]
  7. TIZANIDINE [Concomitant]
  8. GABAPENTIN [Concomitant]
  9. OXYCODONE [Concomitant]
  10. OXYCONTIN [Concomitant]
  11. VITAMIN D [Concomitant]
  12. VITAMIN A [Concomitant]
  13. ARICEPT [Concomitant]
  14. OSTEO BI-FLEX [Concomitant]
  15. XANAX [Concomitant]
  16. FLAXSEED OIL [Concomitant]
  17. WELLBUTRIN [Concomitant]
  18. VITAMIN B12 [Concomitant]
  19. ASPIRIN [Concomitant]
  20. MAGNESIUM [Concomitant]

REACTIONS (7)
  - Feeling abnormal [Unknown]
  - Apathy [Unknown]
  - Pain in extremity [Unknown]
  - Musculoskeletal disorder [Unknown]
  - Palpitations [Unknown]
  - Cough [Unknown]
  - Malaise [Unknown]
